FAERS Safety Report 15590952 (Version 2)
Quarter: 2018Q4

REPORT INFORMATION
  Report Type: Spontaneous
  Country: US (occurrence: US)
  Receive Date: 20181107
  Receipt Date: 20181113
  Transmission Date: 20190205
  Serious: Yes (Other)
  Sender: FDA-Public Use
  Company Number: US-TEVA-2018-US-972685

PATIENT
  Age: 7 Year
  Sex: Female

DRUGS (7)
  1. CARBOPLATIN. [Suspect]
     Active Substance: CARBOPLATIN
     Indication: RETINOBLASTOMA
     Dosage: HIGH DOSE CARBOPLATIN; PART OF CHILDREN^S ONCOLOGY GROUP ARET0321 PROTOCOL
     Route: 065
  2. CISPLATIN. [Suspect]
     Active Substance: CISPLATIN
     Indication: RETINOBLASTOMA
     Dosage: PART OF CHILDREN^S ONCOLOGY GROUP ARET0321 PROTOCOL
     Route: 065
  3. VINCRISTINE [Suspect]
     Active Substance: VINCRISTINE
     Indication: RETINOBLASTOMA
     Dosage: PART OF CHILDREN^S ONCOLOGY GROUP ARET0321 PROTOCOL
     Route: 065
  4. THIOTEPA. [Suspect]
     Active Substance: THIOTEPA
     Indication: RETINOBLASTOMA
     Dosage: PART OF CHILDREN^S ONCOLOGY GROUP ARET0321 PROTOCOL
     Route: 065
  5. CYCLOPHOSPHAMIDE. [Suspect]
     Active Substance: CYCLOPHOSPHAMIDE
     Indication: RETINOBLASTOMA
     Dosage: PART OF CHILDREN^S ONCOLOGY GROUP ARET0321 PROTOCOL
     Route: 065
  6. ETOPOSIDE. [Suspect]
     Active Substance: ETOPOSIDE
     Indication: RETINOBLASTOMA
     Dosage: PART OF CHILDREN^S ONCOLOGY GROUP ARET0321 PROTOCOL
     Route: 065
  7. TOPOTECAN [Suspect]
     Active Substance: TOPOTECAN HYDROCHLORIDE
     Indication: RETINOBLASTOMA
     Route: 065

REACTIONS (2)
  - Alveolar soft part sarcoma [Recovered/Resolved]
  - Urinary bladder sarcoma [Recovered/Resolved]
